FAERS Safety Report 4892048-8 (Version None)
Quarter: 2006Q1

REPORT INFORMATION
  Report Type: 
  Country: None (occurrence: None)
  Receive Date: 20060123
  Receipt Date: 20060109
  Transmission Date: 20060701
  Serious: Yes (Hospitalization)
  Sender: FDA-Public Use
  Company Number: 2006006333

PATIENT
  Age: 44 Year
  Sex: Female

DRUGS (2)
  1. ACTIDUE GIORNO + NOTTE WHITE (PSEUDOEPHEDRINE, ACETAMINOPHEN) [Suspect]
     Indication: PARAINFLUENZAE VIRUS INFECTION
     Dosage: 2000 MG DAILY, ORAL
     Route: 048
     Dates: start: 20051221, end: 20051222
  2. ACTIDUE GIORNO + NOTTE BLUE (DIPHENHYDRAMINE, ACETAMINOPHEN) [Suspect]
     Indication: PARAINFLUENZAE VIRUS INFECTION
     Dosage: 2000 MG DAILY, ORAL
     Route: 048
     Dates: start: 20051221, end: 20051222

REACTIONS (1)
  - STEVENS-JOHNSON SYNDROME [None]
